FAERS Safety Report 6855668-7 (Version None)
Quarter: 2010Q3

REPORT INFORMATION
  Report Type: 
  Country: None (occurrence: None)
  Receive Date: 20100719
  Receipt Date: 20090903
  Transmission Date: 20110219
  Serious: No
  Sender: FDA-Public Use
  Company Number: US-KINGPHARMUSA00001-K200901109

PATIENT
  Age: 45 Year
  Sex: Male
  Weight: 114.29 kg

DRUGS (3)
  1. LEVOXYL [Suspect]
     Indication: HYPOTHYROIDISM
     Dosage: 50 MCG, QD
     Route: 048
     Dates: start: 20090501
  2. LEVOXYL [Suspect]
     Dosage: 75 MCG, QD
     Route: 048
     Dates: start: 20090101
  3. LEVOXYL [Suspect]
     Dosage: 150 MCG, QD
     Route: 048
     Dates: start: 20090101

REACTIONS (4)
  - ALOPECIA [None]
  - DRUG INEFFECTIVE [None]
  - FEELING ABNORMAL [None]
  - WEIGHT INCREASED [None]
